FAERS Safety Report 21011154 (Version 2)
Quarter: 2022Q3

REPORT INFORMATION
  Report Type: Spontaneous
  Country: IE (occurrence: None)
  Receive Date: 20220627
  Receipt Date: 20220829
  Transmission Date: 20221027
  Serious: Yes (Other)
  Sender: FDA-Public Use
  Company Number: 2022A226826

PATIENT
  Age: 78 Year
  Sex: Female

DRUGS (7)
  1. SEROQUEL [Suspect]
     Active Substance: QUETIAPINE FUMARATE
     Route: 065
     Dates: start: 20220522, end: 20220601
  2. SERTRALINE [Suspect]
     Active Substance: SERTRALINE HYDROCHLORIDE
     Dosage: SERTRALINE RESTARTED50.0MG UNKNOWN
     Route: 065
     Dates: start: 20220601
  3. SERTRALINE [Suspect]
     Active Substance: SERTRALINE HYDROCHLORIDE
     Dosage: 50.0MG UNKNOWN
     Route: 065
     Dates: end: 20220522
  4. ZOMEL [Concomitant]
  5. ZOPICLONE [Concomitant]
     Active Substance: ZOPICLONE
  6. NEBIMEL [Concomitant]
  7. NUPRIN [Concomitant]
     Active Substance: IBUPROFEN

REACTIONS (7)
  - Agitation [Not Recovered/Not Resolved]
  - Disorientation [Not Recovered/Not Resolved]
  - Confusional state [Not Recovered/Not Resolved]
  - Wrong product administered [Not Recovered/Not Resolved]
  - Product prescribing error [Not Recovered/Not Resolved]
  - Incorrect dose administered [Not Recovered/Not Resolved]
  - Product name confusion [Not Recovered/Not Resolved]

NARRATIVE: CASE EVENT DATE: 20220501
